FAERS Safety Report 16728754 (Version 1)
Quarter: 2019Q3

REPORT INFORMATION
  Report Type: Spontaneous
  Country: JP (occurrence: JP)
  Receive Date: 20190822
  Receipt Date: 20190822
  Transmission Date: 20191005
  Serious: Yes (Other)
  Sender: FDA-Public Use
  Company Number: PHHY2019JP190187

PATIENT
  Age: 67 Year
  Sex: Male

DRUGS (2)
  1. METHYLPREDNISOLONE. [Suspect]
     Active Substance: METHYLPREDNISOLONE
     Indication: VASCULITIS
     Route: 065
  2. PREDNISOLONE. [Concomitant]
     Active Substance: PREDNISOLONE
     Indication: VASCULITIS
     Dosage: 1.5 MG/KG, QD
     Route: 065

REACTIONS (3)
  - Pulmonary mass [Unknown]
  - Therapeutic product effect incomplete [Unknown]
  - Respiratory failure [Unknown]
